FAERS Safety Report 15361446 (Version 1)
Quarter: 2018Q3

REPORT INFORMATION
  Report Type: Other
  Country: BE (occurrence: BE)
  Receive Date: 20180907
  Receipt Date: 20180907
  Transmission Date: 20181010
  Serious: Yes (Hospitalization, Other)
  Sender: FDA-Public Use
  Company Number: BE-ASPEN-GLO2018BE008647

PATIENT
  Age: 66 Year
  Sex: Female
  Weight: 60 kg

DRUGS (25)
  1. DEXAMETHASONE. [Suspect]
     Active Substance: DEXAMETHASONE
     Indication: PLASMA CELL MYELOMA
     Dosage: UNK
     Route: 065
  2. DEXAMETHASONE. [Suspect]
     Active Substance: DEXAMETHASONE
     Dosage: 20 MG, WEEKLY
     Route: 065
     Dates: start: 20130528, end: 20150320
  3. IXAZOMIB [Concomitant]
     Active Substance: IXAZOMIB
     Indication: PLASMA CELL MYELOMA
     Dosage: 4 MG, EVERY 28 DAYS
     Route: 048
     Dates: start: 20130528, end: 20150313
  4. IMNOVID [Suspect]
     Active Substance: POMALIDOMIDE
     Indication: PLASMA CELL MYELOMA
     Route: 048
  5. DAFALGAN [Concomitant]
     Active Substance: ACETAMINOPHEN
     Indication: BACK PAIN
     Dosage: 1000 MG
     Route: 048
  6. PROMAGNOR [Concomitant]
     Active Substance: MAGNESIUM
     Indication: CONSTIPATION PROPHYLAXIS
     Dosage: UNK
     Route: 048
  7. LYRICA [Concomitant]
     Active Substance: PREGABALIN
     Indication: NEUROPATHY PERIPHERAL
     Dosage: 600 MG, QD
     Route: 048
     Dates: start: 20130426
  8. DEXAMETHASONE. [Suspect]
     Active Substance: DEXAMETHASONE
     Dosage: 40 MG
     Route: 065
     Dates: start: 20100402, end: 20100701
  9. EUSAPRIM [Concomitant]
     Active Substance: SULFAMETHOXAZOLE\TRIMETHOPRIM
     Indication: ANTIBIOTIC PROPHYLAXIS
     Dosage: 160/800MG (THRICE WEEKLY)
     Route: 048
     Dates: start: 20141223
  10. ZOVIRAX [Concomitant]
     Active Substance: ACYCLOVIR
     Indication: ANTIVIRAL PROPHYLAXIS
     Dosage: 1200 MG, QD
     Route: 048
     Dates: start: 20111118
  11. ZOVIRAX [Concomitant]
     Active Substance: ACYCLOVIR
     Dosage: 800 MG, QD
     Route: 048
     Dates: start: 20111118
  12. PANTOMED [Concomitant]
     Indication: GASTROOESOPHAGEAL REFLUX PROPHYLAXIS
     Dosage: 40 MG, QD
     Route: 065
     Dates: start: 20141024
  13. OXYNORM [Concomitant]
     Active Substance: OXYCODONE HYDROCHLORIDE
     Indication: PRODUCT USED FOR UNKNOWN INDICATION
     Dosage: 5 MG, QD
     Route: 065
  14. DUROGESIC [Concomitant]
     Active Substance: FENTANYL
     Dosage: 37.5 MCG/HR
     Route: 062
     Dates: start: 20110725
  15. TARDYFERON [Concomitant]
     Active Substance: FERROUS SULFATE
     Indication: PRODUCT USED FOR UNKNOWN INDICATION
     Dosage: 800 MG
     Route: 065
  16. REVLIMID [Suspect]
     Active Substance: LENALIDOMIDE
     Indication: PLASMA CELL MYELOMA
     Dosage: 525 MG, EVERY 28 DAYS
     Route: 048
     Dates: start: 20130528, end: 20150212
  17. DUROGESIC [Concomitant]
     Active Substance: FENTANYL
     Indication: BACK PAIN
     Dosage: 0.5 DF, 75/72H
     Route: 065
  18. PROMAGNOR [Concomitant]
     Active Substance: MAGNESIUM
     Indication: MUSCLE SPASMS
     Dosage: 450 MG
     Route: 048
  19. FERROUS SULFATE. [Concomitant]
     Active Substance: FERROUS SULFATE
     Indication: IRON DEFICIENCY
     Dosage: 525 MG, QD
     Route: 048
     Dates: start: 20150217
  20. AUGMENTIN [Concomitant]
     Active Substance: AMOXICILLIN\CLAVULANATE POTASSIUM
     Indication: PRODUCT USED FOR UNKNOWN INDICATION
     Dosage: 2625 MG, QD
     Route: 065
     Dates: start: 20180124
  21. DAFALGAN [Concomitant]
     Active Substance: ACETAMINOPHEN
     Indication: PAIN
     Dosage: 3 G, QD
     Route: 048
     Dates: start: 20170527
  22. ARANESP [Concomitant]
     Active Substance: DARBEPOETIN ALFA
     Indication: PRODUCT USED FOR UNKNOWN INDICATION
     Route: 065
  23. AMLOR [Concomitant]
     Active Substance: AMLODIPINE BESYLATE
     Indication: HYPERTENSION
     Dosage: 10 MG, QD
     Route: 048
     Dates: start: 20150217
  24. CARDIOASPIRIN [Concomitant]
     Active Substance: ASPIRIN
     Indication: THROMBOSIS PROPHYLAXIS
     Dosage: 100 MG, QD
     Route: 048
     Dates: start: 20140421
  25. MULTIGAM [Concomitant]
     Active Substance: HUMAN IMMUNOGLOBULIN G
     Indication: PRODUCT USED FOR UNKNOWN INDICATION
     Dosage: 25 G
     Route: 065

REACTIONS (1)
  - Rectal adenocarcinoma [Recovered/Resolved]

NARRATIVE: CASE EVENT DATE: 201801
